FAERS Safety Report 4843982-6 (Version None)
Quarter: 2005Q4

REPORT INFORMATION
  Report Type: 
  Country: None (occurrence: None)
  Receive Date: 20051130
  Receipt Date: 20051130
  Transmission Date: 20060501
  Serious: Yes (Other)
  Sender: FDA-Public Use
  Company Number: None

PATIENT
  Age: 58 Year
  Sex: Female
  Weight: 55.3388 kg

DRUGS (12)
  1. KLONOPIN RAPIDLY DISINTEGRATING [Suspect]
     Indication: COMPLEX REGIONAL PAIN SYNDROME
     Dosage: 1MG TOTAL DOSE 0.25MG-0.25MG-.5MG PO
     Route: 048
     Dates: end: 20050916
  2. KLONOPIN RAPIDLY DISINTEGRATING [Suspect]
     Indication: MYOCLONUS
     Dosage: 1MG TOTAL DOSE 0.25MG-0.25MG-.5MG PO
     Route: 048
     Dates: end: 20050916
  3. KLONOPIN RAPIDLY DISINTEGRATING [Suspect]
     Indication: TREMOR
     Dosage: 1MG TOTAL DOSE 0.25MG-0.25MG-.5MG PO
     Route: 048
     Dates: end: 20050916
  4. BUPRENORPHINE [Concomitant]
  5. CARDURA [Concomitant]
  6. CATAPRES-TTS-1 [Concomitant]
  7. MIACALCIN [Concomitant]
  8. PROCARDIA [Concomitant]
  9. TRAZODONE HCL [Concomitant]
  10. ASPIRIN [Concomitant]
  11. DOCUSATE SODIUM [Concomitant]
  12. VITAMIN + MINERAL SUPPLEMENTS [Concomitant]

REACTIONS (4)
  - CONDITION AGGRAVATED [None]
  - DRUG WITHDRAWAL MAINTENANCE THERAPY [None]
  - MUSCLE SPASMS [None]
  - TREMOR [None]
